FAERS Safety Report 15606317 (Version 1)
Quarter: 2018Q4

REPORT INFORMATION
  Report Type: Spontaneous
  Country: US (occurrence: US)
  Receive Date: 20181106
  Receipt Date: 20181106
  Transmission Date: 20190205
  Serious: Yes (Hospitalization)
  Sender: FDA-Public Use
  Company Number: None

PATIENT
  Age: 69 Year
  Sex: Male
  Weight: 73.6 kg

DRUGS (10)
  1. GLIPIZIDE. [Concomitant]
     Active Substance: GLIPIZIDE
  2. LOSARTAN. [Concomitant]
     Active Substance: LOSARTAN
  3. NICOTINE. [Concomitant]
     Active Substance: NICOTINE
  4. TAMSULOSIN [Concomitant]
     Active Substance: TAMSULOSIN
  5. CASODEX [Suspect]
     Active Substance: BICALUTAMIDE
     Dates: end: 20180805
  6. BICALUTAMIND [Concomitant]
  7. ASPIRIN. [Concomitant]
     Active Substance: ASPIRIN
  8. INSULIN [Concomitant]
     Active Substance: INSULIN NOS
  9. METOPROLOL. [Concomitant]
     Active Substance: METOPROLOL
  10. ATORVASTATIN [Concomitant]
     Active Substance: ATORVASTATIN

REACTIONS (4)
  - Pain [None]
  - Acute myocardial infarction [None]
  - Chest pain [None]
  - Dyspnoea [None]

NARRATIVE: CASE EVENT DATE: 20181024
